FAERS Safety Report 5775258-7 (Version None)
Quarter: 2008Q2

REPORT INFORMATION
  Report Type: 
  Country: None (occurrence: None)
  Receive Date: 20080616
  Receipt Date: 20080616
  Transmission Date: 20081010
  Serious: Yes (Hospitalization)
  Sender: FDA-Public Use
  Company Number: None

PATIENT
  Sex: Male
  Weight: 32.7 kg

DRUGS (4)
  1. CYTARABINE [Suspect]
     Dosage: 2200 MG
  2. DAUNORUBICIN HCL [Suspect]
     Dosage: 165 MG
  3. ETOPOSIDE [Suspect]
     Dosage: 550 MG
  4. MYLOTARG [Suspect]
     Dosage: 3.3 MG

REACTIONS (6)
  - HEART RATE INCREASED [None]
  - HYPERHIDROSIS [None]
  - JAW DISORDER [None]
  - LOSS OF CONSCIOUSNESS [None]
  - MUSCLE RIGIDITY [None]
  - UNRESPONSIVE TO STIMULI [None]
